FAERS Safety Report 5217273-8 (Version None)
Quarter: 2007Q1

REPORT INFORMATION
  Report Type: 
  Country: None (occurrence: None)
  Receive Date: 20070124
  Receipt Date: 20060327
  Transmission Date: 20070707
  Serious: No
  Sender: FDA-Public Use
  Company Number: US-GLAXOSMITHKLINE-A0579625A

PATIENT
  Age: 18 Year
  Sex: Female

DRUGS (7)
  1. PAXIL CR [Suspect]
     Indication: DEPRESSION
     Route: 048
     Dates: start: 20041101
  2. XANAX [Concomitant]
     Dates: start: 20041124, end: 20041101
  3. LORAZEPAM [Concomitant]
  4. NAPROSYN [Concomitant]
  5. VICODIN [Concomitant]
  6. MOBIC [Concomitant]
     Indication: MUSCULOSKELETAL PAIN
  7. BIRTH CONTROL PILLS [Concomitant]
     Route: 048

REACTIONS (6)
  - ALCOHOL POISONING [None]
  - DECREASED APPETITE [None]
  - FATIGUE [None]
  - POOR QUALITY SLEEP [None]
  - RASH [None]
  - TINNITUS [None]
